FAERS Safety Report 14118227 (Version 2)
Quarter: 2019Q2

REPORT INFORMATION
  Report Type: Spontaneous
  Country: FR (occurrence: FR)
  Receive Date: 20171024
  Receipt Date: 20190402
  Transmission Date: 20190711
  Serious: Yes (Other)
  Sender: FDA-Public Use
  Company Number: FR-MERCK KGAA-2031227

PATIENT
  Age: 47 Year
  Sex: Female
  Weight: 96 kg

DRUGS (4)
  1. EUTHYROX [Suspect]
     Active Substance: LEVOTHYROXINE SODIUM
     Indication: HYPOTHYROIDISM
     Route: 048
     Dates: start: 201704, end: 201709
  2. EUTHYROX [Suspect]
     Active Substance: LEVOTHYROXINE SODIUM
     Route: 048
     Dates: start: 20170915, end: 20170919
  3. PROPRANOLOL [Concomitant]
     Active Substance: PROPRANOLOL HYDROCHLORIDE
  4. MICROVAL [Concomitant]
     Active Substance: LEVONORGESTREL

REACTIONS (18)
  - Hiccups [Recovering/Resolving]
  - Dizziness [Not Recovered/Not Resolved]
  - Rash [Recovering/Resolving]
  - Pain [Not Recovered/Not Resolved]
  - Formication [Not Recovered/Not Resolved]
  - Vision blurred [Recovered/Resolved]
  - Affective disorder [Recovered/Resolved]
  - Gastrointestinal disorder [Not Recovered/Not Resolved]
  - Headache [Not Recovered/Not Resolved]
  - Palpitations [Not Recovered/Not Resolved]
  - Weight abnormal [Not Recovered/Not Resolved]
  - Blood thyroid stimulating hormone normal [Unknown]
  - Urinary tract disorder [Recovering/Resolving]
  - Vertigo [Recovered/Resolved]
  - Fatigue [Recovered/Resolved]
  - Disturbance in attention [Recovered/Resolved]
  - Diffuse alopecia [Not Recovered/Not Resolved]
  - Muscle spasms [Not Recovered/Not Resolved]

NARRATIVE: CASE EVENT DATE: 201705
